FAERS Safety Report 10619430 (Version 2)
Quarter: 2014Q4

REPORT INFORMATION
  Report Type: Spontaneous
  Country: IT (occurrence: IT)
  Receive Date: 20141202
  Receipt Date: 20141208
  Transmission Date: 20150529
  Serious: Yes (Hospitalization)
  Sender: FDA-Public Use
  Company Number: PHHY2014IT154091

PATIENT
  Sex: Female

DRUGS (11)
  1. EPARGRISEOVIT [Concomitant]
  2. TAUXIB [Concomitant]
     Active Substance: ETORICOXIB
     Dosage: 60 MG, UNK
  3. GASTROLOC [Concomitant]
     Dosage: 20 MG, UNK
  4. PALEXIA [Concomitant]
     Active Substance: TAPENTADOL HYDROCHLORIDE
     Dosage: 100 MG, UNK
  5. TRAMADOL [Concomitant]
     Active Substance: TRAMADOL
     Dosage: 100 MG/ML, UNK
  6. METFORALMILLE [Suspect]
     Active Substance: METFORMIN HYDROCHLORIDE
     Indication: TYPE 2 DIABETES MELLITUS
     Dosage: 1500 MG, QD
     Route: 048
     Dates: start: 20040101, end: 20141015
  7. OKI [Concomitant]
     Active Substance: KETOPROFEN LYSINE
     Dosage: 80 MG, UNK
  8. REPAGLINIDE. [Suspect]
     Active Substance: REPAGLINIDE
     Indication: TYPE 2 DIABETES MELLITUS
     Dosage: 4 MG, QD
     Route: 048
     Dates: start: 20140401, end: 20141015
  9. ACEDIUR [Concomitant]
  10. TORA-DOL [Concomitant]
     Active Substance: KETOROLAC TROMETHAMINE
     Dosage: 30 MG/ML, UNK
  11. NICETILE [Concomitant]
     Active Substance: ACETYLCARNITINE HYDROCHLORIDE
     Dosage: 500 MG, UNK

REACTIONS (2)
  - Hypoglycaemia [Recovered/Resolved]
  - Loss of consciousness [Recovered/Resolved]

NARRATIVE: CASE EVENT DATE: 20141015
